FAERS Safety Report 19813242 (Version 1)
Quarter: 2021Q3

REPORT INFORMATION
  Report Type: Spontaneous
  Country: TH (occurrence: TH)
  Receive Date: 20210910
  Receipt Date: 20210910
  Transmission Date: 20211014
  Serious: Yes (Hospitalization, Other)
  Sender: FDA-Public Use
  Company Number: TH-B.I. PHARMACEUTICALS,INC./RIDGEFIELD-2021-BI-125333

PATIENT
  Age: 60 Year
  Sex: Female

DRUGS (5)
  1. PRADAXA [Suspect]
     Active Substance: DABIGATRAN ETEXILATE MESYLATE
     Indication: ATRIAL FIBRILLATION
     Route: 048
  2. CAPTOPRIL. [Suspect]
     Active Substance: CAPTOPRIL
     Indication: PRODUCT USED FOR UNKNOWN INDICATION
     Dosage: CAPTOPRIL 25 MG 0.5 TAB TID
  3. PRADAXA [Suspect]
     Active Substance: DABIGATRAN ETEXILATE MESYLATE
     Indication: CEREBROVASCULAR ACCIDENT PROPHYLAXIS
     Dosage: DABIGATRAN 110 MG 1 CAPSULE BID VIA ORAL
     Route: 048
  4. CARVEDILOL. [Suspect]
     Active Substance: CARVEDILOL
     Indication: PRODUCT USED FOR UNKNOWN INDICATION
     Dosage: CARVEDILOL 6.25 MG 1 TAB BID
  5. CARDURA [Suspect]
     Active Substance: DOXAZOSIN MESYLATE
     Indication: PRODUCT USED FOR UNKNOWN INDICATION
     Dosage: CARDURA 2 MG ONCE DAILY

REACTIONS (3)
  - Coronary artery disease [Recovered/Resolved]
  - Atrial fibrillation [Recovered/Resolved]
  - Cardiac failure congestive [Recovered/Resolved]
